FAERS Safety Report 26045680 (Version 2)
Quarter: 2025Q4

REPORT INFORMATION
  Report Type: Spontaneous
  Country: US (occurrence: US)
  Receive Date: 20251114
  Receipt Date: 20251201
  Transmission Date: 20260118
  Serious: No
  Sender: MICRO LABS LIMITED
  Company Number: US-MICRO LABS LIMITED-ML2025-05708

PATIENT
  Age: 56 Year
  Sex: Male
  Weight: 68.04 kg

DRUGS (5)
  1. DORZOLAMIDE HYDROCHLORIDE\TIMOLOL MALEATE [Suspect]
     Active Substance: DORZOLAMIDE HYDROCHLORIDE\TIMOLOL MALEATE
     Indication: Developmental glaucoma
     Dosage: DOSE: ONE DROP IN EACH EYE?FREQUENCY: TWICE A DAY (MORNING AND EVENING)
     Route: 047
  2. DORZOLAMIDE HYDROCHLORIDE\TIMOLOL MALEATE [Suspect]
     Active Substance: DORZOLAMIDE HYDROCHLORIDE\TIMOLOL MALEATE
     Dosage: DOSE: ONE DROP IN EACH EYE?FREQUENCY: TWICE A DAY (MORNING AND EVENING)
     Route: 047
  3. DORZOLAMIDE HYDROCHLORIDE\TIMOLOL MALEATE [Suspect]
     Active Substance: DORZOLAMIDE HYDROCHLORIDE\TIMOLOL MALEATE
     Dosage: DOSE: ONE DROP IN EACH EYE?FREQUENCY: TWICE A DAY (MORNING AND EVENING)
     Route: 047
  4. DORZOLAMIDE HYDROCHLORIDE\TIMOLOL MALEATE [Suspect]
     Active Substance: DORZOLAMIDE HYDROCHLORIDE\TIMOLOL MALEATE
     Dosage: DOSE: ONE DROP IN EACH EYE?FREQUENCY: TWICE A DAY (MORNING AND EVENING)
     Route: 047
  5. ROCKLATAN [Concomitant]
     Active Substance: LATANOPROST\NETARSUDIL MESYLATE
     Indication: Product used for unknown indication
     Dosage: AT NIGHT

REACTIONS (5)
  - Growth of eyelashes [Not Recovered/Not Resolved]
  - Vision blurred [Not Recovered/Not Resolved]
  - Product quality issue [Unknown]
  - Increased dose administered [Unknown]
  - Product storage error [Unknown]
